FAERS Safety Report 11007137 (Version 1)
Quarter: 2015Q2

REPORT INFORMATION
  Report Type: Report from Study
  Country: US (occurrence: US)
  Receive Date: 20150409
  Receipt Date: 20150409
  Transmission Date: 20150821
  Serious: Yes (Hospitalization)
  Sender: FDA-Public Use
  Company Number: US-009507513-1504USA003207

PATIENT
  Age: 80 Year
  Sex: Male
  Weight: 86.6 kg

DRUGS (6)
  1. CODEINE (+) GUAIFENESIN [Concomitant]
  2. AZACITIDINE. [Suspect]
     Active Substance: AZACITIDINE
     Dosage: 75 MG/M2 SQ OR IV ON DAYS 1-7
     Dates: start: 20150309, end: 20150315
  3. VORINOSTAT [Suspect]
     Active Substance: VORINOSTAT
     Indication: CHRONIC MYELOMONOCYTIC LEUKAEMIA
     Dosage: 300 MG PO BID ON DAYS 3-9
     Route: 048
     Dates: start: 20130523, end: 20130529
  4. DRONABINOL. [Concomitant]
     Active Substance: DRONABINOL
  5. VORINOSTAT [Suspect]
     Active Substance: VORINOSTAT
     Dosage: 300 MG PO BID ON DAYS 3-9
     Route: 048
     Dates: start: 20150311, end: 20150317
  6. AZACITIDINE. [Suspect]
     Active Substance: AZACITIDINE
     Indication: CHRONIC MYELOMONOCYTIC LEUKAEMIA
     Dosage: 75 MG/M2 SQ OR IV ON DAYS 1-7 OR 75 MG/M2 SQ OR IV ON DAYS 1-5 AND DAYS 8-9
     Dates: start: 20130521

REACTIONS (1)
  - Fracture [Recovering/Resolving]

NARRATIVE: CASE EVENT DATE: 20150318
